FAERS Safety Report 4960572-5 (Version None)
Quarter: 2006Q2

REPORT INFORMATION
  Report Type: 
  Country: None (occurrence: None)
  Receive Date: 20060403
  Receipt Date: 20030618
  Transmission Date: 20061013
  Serious: Yes (Death)
  Sender: FDA-Public Use
  Company Number: IL-AVENTIS-200316164GDDC

PATIENT
  Age: 71 Year
  Sex: Female
  Weight: 62 kg

DRUGS (10)
  1. ENOXAPARIN SODIUM [Suspect]
     Indication: MYOCARDIAL INFARCTION
     Dosage: DOSE: ENOX/PLACEBO BOLUS NOT GIVEN
  2. ENOXAPARIN SODIUM [Suspect]
     Dosage: DOSE: HEP/PLACEBO BOLUS NOT GIVEN
  3. ENOXAPARIN SODIUM [Suspect]
     Dosage: DOSE: ENOX/PLACEBO SC 62 MG
     Route: 058
     Dates: start: 20030616, end: 20030616
  4. ENOXAPARIN SODIUM [Suspect]
     Dosage: DOSE: HEP/PLACEBO IV 650 UNITS/HOUR
     Route: 041
     Dates: start: 20030616, end: 20030617
  5. ASPIRIN [Suspect]
     Indication: MYOCARDIAL INFARCTION
     Route: 048
     Dates: start: 20030616, end: 20030616
  6. STREPTASE [Suspect]
     Indication: MYOCARDIAL INFARCTION
     Route: 042
     Dates: start: 20030616, end: 20030616
  7. CLOPIDOGREL [Suspect]
     Indication: CARDIAC OPERATION
     Route: 048
     Dates: start: 20030616
  8. PREDNISONE [Suspect]
     Indication: POLYMYALGIA
     Route: 048
  9. CAPTOPRIL [Concomitant]
     Indication: ACUTE MYOCARDIAL INFARCTION
     Route: 048
     Dates: start: 20030616
  10. CORONARY VASODILATORS [Concomitant]
     Indication: ACUTE MYOCARDIAL INFARCTION
     Route: 042
     Dates: start: 20030616

REACTIONS (7)
  - BLOOD GLUCOSE INCREASED [None]
  - BLOOD PRESSURE ABNORMAL [None]
  - FALL [None]
  - LOSS OF CONSCIOUSNESS [None]
  - MYOCARDIAL RUPTURE [None]
  - PERICARDIAL EFFUSION [None]
  - SUDDEN DEATH [None]
